FAERS Safety Report 7083685-3 (Version None)
Quarter: 2010Q4

REPORT INFORMATION
  Report Type: 
  Country: None (occurrence: None)
  Receive Date: 20101103
  Receipt Date: 20101103
  Transmission Date: 20110411
  Serious: Yes (Disabling)
  Sender: FDA-Public Use
  Company Number: None

PATIENT
  Age: 30 Year
  Sex: Female
  Weight: 63.5036 kg

DRUGS (1)
  1. LESSINA-28 [Suspect]
     Indication: CONTRACEPTION
     Dates: start: 20100121, end: 20101103

REACTIONS (3)
  - ANXIETY [None]
  - DEPRESSION [None]
  - PANIC DISORDER [None]
